FAERS Safety Report 18050522 (Version 1)
Quarter: 2020Q3

REPORT INFORMATION
  Report Type: Spontaneous
  Country: CA (occurrence: CA)
  Receive Date: 20200721
  Receipt Date: 20200721
  Transmission Date: 20201103
  Serious: Yes (Death, Hospitalization)
  Sender: FDA-Public Use
  Company Number: CA-B.I. PHARMACEUTICALS,INC./RIDGEFIELD-2020-BI-010209

PATIENT
  Age: 73 Year
  Sex: Female

DRUGS (1)
  1. OFEV [Suspect]
     Active Substance: NINTEDANIB
     Indication: IDIOPATHIC PULMONARY FIBROSIS
     Route: 065
     Dates: start: 201909, end: 202006

REACTIONS (13)
  - Varicose vein [Unknown]
  - Weight decreased [Unknown]
  - Vein disorder [Unknown]
  - Liver disorder [Unknown]
  - Nausea [Unknown]
  - Idiopathic pulmonary fibrosis [Fatal]
  - Skin odour abnormal [Unknown]
  - Abdominal pain upper [Unknown]
  - Blood pressure increased [Unknown]
  - Oxygen saturation decreased [Unknown]
  - Diarrhoea [Unknown]
  - Skin discolouration [Unknown]
  - Renal disorder [Unknown]

NARRATIVE: CASE EVENT DATE: 20200629
